FAERS Safety Report 24891390 (Version 1)
Quarter: 2025Q1

REPORT INFORMATION
  Report Type: Report from Study
  Country: CA (occurrence: CA)
  Receive Date: 20250127
  Receipt Date: 20250127
  Transmission Date: 20250409
  Serious: Yes (Death)
  Sender: ABBVIE
  Company Number: CA-ABBVIE-6102823

PATIENT
  Age: 76 Year
  Sex: Male
  Weight: 82.4 kg

DRUGS (14)
  1. FOSCARBIDOPA\FOSLEVODOPA [Suspect]
     Active Substance: FOSCARBIDOPA\FOSLEVODOPA
     Indication: Parkinson^s disease
     Route: 058
     Dates: start: 20241127, end: 20241211
  2. PERINDOPRIL [Concomitant]
     Active Substance: PERINDOPRIL
     Indication: Hypertension
     Route: 048
     Dates: start: 2014, end: 20250110
  3. PAXIL [Concomitant]
     Active Substance: PAROXETINE HYDROCHLORIDE
     Indication: Generalised anxiety disorder
     Route: 048
     Dates: start: 2008
  4. MESALAMINE [Concomitant]
     Active Substance: MESALAMINE
     Indication: Colitis ulcerative
     Route: 048
     Dates: start: 2004
  5. FLOMAX [Concomitant]
     Active Substance: TAMSULOSIN HYDROCHLORIDE
     Indication: Prostatomegaly
     Route: 048
     Dates: start: 2018
  6. ASPIRIN [Concomitant]
     Active Substance: ASPIRIN
     Indication: Ischaemic heart disease prophylaxis
     Route: 048
     Dates: start: 2014
  7. MELATONIN [Concomitant]
     Active Substance: MELATONIN
     Indication: Rapid eye movement sleep behaviour disorder
     Route: 048
     Dates: start: 2013
  8. CLONAZEPAM [Concomitant]
     Active Substance: CLONAZEPAM
     Indication: Rapid eye movement sleep behaviour disorder
     Route: 048
     Dates: start: 2013
  9. GABAPENTIN [Concomitant]
     Active Substance: GABAPENTIN
     Indication: Neuropathy peripheral
     Route: 048
     Dates: start: 20231026
  10. SENOKOT [Concomitant]
     Active Substance: SENNOSIDES
     Indication: Colitis ulcerative
     Dosage: 2 TABLET
     Route: 048
     Dates: start: 2023
  11. DONEPEZIL [Concomitant]
     Active Substance: DONEPEZIL
     Indication: Dementia
     Route: 048
     Dates: start: 20220810
  12. POLYETHYLENE GLYCOL 3350 [Concomitant]
     Active Substance: POLYETHYLENE GLYCOL 3350
     Indication: Constipation
     Route: 048
     Dates: start: 2014
  13. NAPROXEN [Concomitant]
     Active Substance: NAPROXEN
     Indication: Pericarditis
     Route: 048
     Dates: start: 20241213
  14. COLCHICINE [Concomitant]
     Active Substance: COLCHICINE
     Indication: Pericarditis
     Route: 048
     Dates: start: 20241213

REACTIONS (1)
  - Medical aid in dying [Fatal]

NARRATIVE: CASE EVENT DATE: 20250110
